FAERS Safety Report 11201267 (Version 1)
Quarter: 2015Q2

REPORT INFORMATION
  Report Type: Spontaneous
  Country: GB (occurrence: GB)
  Receive Date: 20150619
  Receipt Date: 20150619
  Transmission Date: 20150821
  Serious: Yes (Other)
  Sender: FDA-Public Use
  Company Number: GB-JNJFOC-20150610045

PATIENT
  Age: 24 Month
  Sex: Male

DRUGS (1)
  1. CALPOL [Suspect]
     Active Substance: ACETAMINOPHEN
     Indication: TEETHING
     Dosage: DOSE: 7.5 (UNIT UNSPECIFIED)
     Route: 065

REACTIONS (4)
  - Reaction to drug excipients [Unknown]
  - Psychomotor hyperactivity [Recovered/Resolved]
  - Product label issue [Unknown]
  - Product formulation issue [Unknown]
